FAERS Safety Report 16367853 (Version 2)
Quarter: 2019Q2

REPORT INFORMATION
  Report Type: Spontaneous
  Country: CN (occurrence: CN)
  Receive Date: 20190529
  Receipt Date: 20190612
  Transmission Date: 20190711
  Serious: Yes (Other)
  Sender: FDA-Public Use
  Company Number: CN-BAYER-2019-099889

PATIENT
  Age: 76 Year
  Sex: Male

DRUGS (1)
  1. NEXAVAR [Suspect]
     Active Substance: SORAFENIB
     Indication: RENAL NEOPLASM
     Dosage: DAILY DOSE 4 DF
     Route: 048
     Dates: start: 201803

REACTIONS (2)
  - Renal neoplasm [None]
  - Drug ineffective [None]

NARRATIVE: CASE EVENT DATE: 201905
